FAERS Safety Report 14119691 (Version 3)
Quarter: 2017Q4

REPORT INFORMATION
  Report Type: Spontaneous
  Country: BE (occurrence: BE)
  Receive Date: 20171024
  Receipt Date: 20171222
  Transmission Date: 20180321
  Serious: Yes (Hospitalization)
  Sender: FDA-Public Use
  Company Number: PHHY2017BE151579

PATIENT
  Age: 34 Year
  Sex: Female

DRUGS (1)
  1. GILENYA [Suspect]
     Active Substance: FINGOLIMOD HYDROCHLORIDE
     Indication: MULTIPLE SCLEROSIS
     Dosage: 0.5 MG, QD
     Route: 048
     Dates: start: 20171012, end: 20171012

REACTIONS (4)
  - Sinus arrhythmia [Unknown]
  - Atrioventricular block second degree [Unknown]
  - Sinus bradycardia [Unknown]
  - Conduction disorder [Unknown]

NARRATIVE: CASE EVENT DATE: 20171012
